FAERS Safety Report 4486992-3 (Version None)
Quarter: 2004Q3

REPORT INFORMATION
  Report Type: 
  Country: None (occurrence: None)
  Receive Date: 20040921
  Receipt Date: 20040408
  Transmission Date: 20050211
  Serious: Yes (Hospitalization)
  Sender: FDA-Public Use
  Company Number: 163-20785-04040240

PATIENT
  Age: 85 Year
  Sex: Female

DRUGS (9)
  1. THALOMID [Suspect]
     Indication: MULTIPLE MYELOMA
     Dosage: 100 MG DAILY ORAL
     Route: 048
     Dates: start: 20031021, end: 20040120
  2. COZAAR [Concomitant]
  3. ASPIRIN [Concomitant]
  4. AVANDIA [Concomitant]
  5. MULTIVITAMIN [Concomitant]
  6. BEXTRA [Concomitant]
  7. LASIX [Concomitant]
  8. ZOLOFT (SERTRALIEN HYDROCHLORIDE) [Concomitant]
  9. DECADRON [Concomitant]

REACTIONS (3)
  - DYSPNOEA [None]
  - OEDEMA PERIPHERAL [None]
  - SWELLING FACE [None]
